FAERS Safety Report 9500388 (Version 3)
Quarter: 2013Q4

REPORT INFORMATION
  Report Type: Spontaneous
  Country: US (occurrence: None)
  Receive Date: 20130107
  Receipt Date: 20131226
  Transmission Date: 20140711
  Serious: Yes (Other)
  Sender: FDA-Public Use
  Company Number: PHEH2012US023394

PATIENT
  Age: 50 Year
  Sex: Female

DRUGS (1)
  1. GILENYA [Suspect]
     Indication: MULTIPLE SCLEROSIS
     Route: 048
     Dates: start: 20121001

REACTIONS (6)
  - Muscle spasms [None]
  - Pain [None]
  - Diarrhoea [None]
  - Arthralgia [None]
  - Pain in extremity [None]
  - Abdominal pain upper [None]
